FAERS Safety Report 13680695 (Version 1)
Quarter: 2017Q2

REPORT INFORMATION
  Report Type: Spontaneous
  Country: US (occurrence: US)
  Receive Date: 20170623
  Receipt Date: 20170623
  Transmission Date: 20170830
  Serious: No
  Sender: FDA-Public Use
  Company Number: US-ACCORD-044651

PATIENT
  Sex: Female

DRUGS (4)
  1. FIBERCON [Concomitant]
     Active Substance: CALCIUM POLYCARBOPHIL
  2. ALLOPURINOL. [Suspect]
     Active Substance: ALLOPURINOL
     Indication: PRODUCT USED FOR UNKNOWN INDICATION
  3. JAKAFI [Suspect]
     Active Substance: RUXOLITINIB
     Indication: MYELOFIBROSIS
     Dosage: STARTED TWO YEARS AGO.?THEN RESTARTED AT 5 MG BID FROM 01-AUG-2016
     Route: 048
  4. ACETYLSALICYLIC ACID [Concomitant]
     Active Substance: ASPIRIN

REACTIONS (9)
  - Drug ineffective [Unknown]
  - Splenomegaly [Recovering/Resolving]
  - Dysgeusia [Unknown]
  - Constipation [Unknown]
  - Haemoglobin abnormal [Unknown]
  - Alopecia [Unknown]
  - Emotional disorder [Unknown]
  - Blood count abnormal [Unknown]
  - Red blood cell abnormality [Unknown]
